FAERS Safety Report 18267003 (Version 1)
Quarter: 2020Q3

REPORT INFORMATION
  Report Type: Spontaneous
  Country: US (occurrence: US)
  Receive Date: 20200915
  Receipt Date: 20200915
  Transmission Date: 20201103
  Serious: Yes (Life-Threatening, Hospitalization)
  Sender: FDA-Public Use
  Company Number: US-MYLANLABS-2020M1077579

PATIENT
  Sex: Female

DRUGS (27)
  1. PERCOCET [Suspect]
     Active Substance: ACETAMINOPHEN\OXYCODONE HYDROCHLORIDE
     Indication: FACIAL BONES FRACTURE
  2. DILAUDID [Suspect]
     Active Substance: HYDROMORPHONE HYDROCHLORIDE
     Indication: CONTUSION
  3. MORPHINE [Suspect]
     Active Substance: MORPHINE
     Indication: PELVIC FRACTURE
     Dosage: UNK
  4. TRAMADOL. [Suspect]
     Active Substance: TRAMADOL
     Indication: PELVIC FRACTURE
     Dosage: UNK
  5. HYDROCODONE [Suspect]
     Active Substance: HYDROCODONE
     Indication: CONTUSION
  6. OXYCONTIN [Suspect]
     Active Substance: OXYCODONE HYDROCHLORIDE
     Indication: PELVIC FRACTURE
     Dosage: UNK
  7. FENTANYL. [Suspect]
     Active Substance: FENTANYL
     Indication: FACIAL BONES FRACTURE
  8. PERCOCET [Suspect]
     Active Substance: ACETAMINOPHEN\OXYCODONE HYDROCHLORIDE
     Indication: CONTUSION
  9. DILAUDID [Suspect]
     Active Substance: HYDROMORPHONE HYDROCHLORIDE
     Indication: PELVIC FRACTURE
     Dosage: UNK
  10. OXYCONTIN [Suspect]
     Active Substance: OXYCODONE HYDROCHLORIDE
     Indication: FACIAL BONES FRACTURE
  11. TRAMADOL. [Suspect]
     Active Substance: TRAMADOL
     Indication: FACIAL BONES FRACTURE
  12. HYDROCODONE [Suspect]
     Active Substance: HYDROCODONE
     Indication: FACIAL BONES FRACTURE
  13. DILAUDID [Suspect]
     Active Substance: HYDROMORPHONE HYDROCHLORIDE
     Indication: FACIAL BONES FRACTURE
  14. MORPHINE [Suspect]
     Active Substance: MORPHINE
     Indication: FACIAL BONES FRACTURE
  15. VICODIN [Suspect]
     Active Substance: ACETAMINOPHEN\HYDROCODONE BITARTRATE
     Indication: PELVIC FRACTURE
     Dosage: UNK
  16. HYDROCODONE [Suspect]
     Active Substance: HYDROCODONE
     Indication: PELVIC FRACTURE
     Dosage: UNK
  17. FENTANYL. [Suspect]
     Active Substance: FENTANYL
     Indication: PELVIC FRACTURE
     Dosage: UNK
  18. MORPHINE [Suspect]
     Active Substance: MORPHINE
     Indication: CONTUSION
  19. TRAMADOL. [Suspect]
     Active Substance: TRAMADOL
     Indication: CONTUSION
  20. FENTANYL. [Suspect]
     Active Substance: FENTANYL
     Indication: CONTUSION
  21. VICODIN [Suspect]
     Active Substance: ACETAMINOPHEN\HYDROCODONE BITARTRATE
     Indication: CONTUSION
  22. OXYCONTIN [Suspect]
     Active Substance: OXYCODONE HYDROCHLORIDE
     Indication: CONTUSION
  23. ATIVAN [Suspect]
     Active Substance: LORAZEPAM
     Indication: FACIAL BONES FRACTURE
  24. ATIVAN [Suspect]
     Active Substance: LORAZEPAM
     Indication: CONTUSION
  25. PERCOCET [Suspect]
     Active Substance: ACETAMINOPHEN\OXYCODONE HYDROCHLORIDE
     Indication: PELVIC FRACTURE
     Dosage: UNK
  26. VICODIN [Suspect]
     Active Substance: ACETAMINOPHEN\HYDROCODONE BITARTRATE
     Indication: FACIAL BONES FRACTURE
  27. ATIVAN [Suspect]
     Active Substance: LORAZEPAM
     Indication: PELVIC FRACTURE
     Dosage: UNK

REACTIONS (1)
  - Dyspnoea [Unknown]
